FAERS Safety Report 25287347 (Version 1)
Quarter: 2025Q2

REPORT INFORMATION
  Report Type: Spontaneous
  Country: US (occurrence: None)
  Receive Date: 20250509
  Receipt Date: 20250509
  Transmission Date: 20250717
  Serious: Yes (Hospitalization)
  Sender: FDA-CTU
  Company Number: None

PATIENT
  Age: 31 Month
  Sex: Male
  Weight: 10.4 kg

DRUGS (6)
  1. CYCLOPHOSPHAMIDE [Suspect]
     Active Substance: CYCLOPHOSPHAMIDE
     Dates: start: 20250207, end: 20250414
  2. DEXRAZOXANE [Concomitant]
     Active Substance: DEXRAZOXANE
  3. Doxombicin  hydrochloride [Concomitant]
  4. MESNA [Concomitant]
     Active Substance: MESNA
  5. PEGFILGRASTIM [Concomitant]
     Active Substance: PEGFILGRASTIM
  6. VinCR!Stine sulfate [Concomitant]

REACTIONS (1)
  - Hypokalaemia [None]

NARRATIVE: CASE EVENT DATE: 20250419
